FAERS Safety Report 18565524 (Version 1)
Quarter: 2020Q4

REPORT INFORMATION
  Report Type: Spontaneous
  Country: NL (occurrence: NL)
  Receive Date: 20201201
  Receipt Date: 20201201
  Transmission Date: 20210114
  Serious: Yes (Other)
  Sender: FDA-Public Use
  Company Number: NL-TEVA-2020-NL-1851678

PATIENT
  Sex: Male
  Weight: 70.5 kg

DRUGS (1)
  1. AMOXICILLINE CAPSULE 500MG / BRAND NAME NOT SPECIFIED [Suspect]
     Active Substance: AMOXICILLIN
     Indication: PNEUMONIA
     Dosage: 1500 MILLIGRAM DAILY;  THERAPY END DATE : ASKED BUT UNKNOWN
     Dates: start: 20201021

REACTIONS (1)
  - Diarrhoea haemorrhagic [Not Recovered/Not Resolved]
